FAERS Safety Report 25254052 (Version 1)
Quarter: 2025Q2

REPORT INFORMATION
  Report Type: Spontaneous
  Country: US (occurrence: US)
  Receive Date: 20250430
  Receipt Date: 20250430
  Transmission Date: 20250717
  Serious: Yes (Other)
  Sender: RANBAXY
  Company Number: US-SUN PHARMACEUTICAL INDUSTRIES LTD-2025R1-505278

PATIENT
  Age: 71 Year
  Sex: Male

DRUGS (1)
  1. AMIODARONE [Suspect]
     Active Substance: AMIODARONE
     Indication: Ventricular tachycardia
     Dosage: 400 MILLIGRAM, QD
     Route: 048

REACTIONS (4)
  - Acute hepatic failure [Recovered/Resolved]
  - Hepatic cirrhosis [Recovered/Resolved]
  - Portal hypertension [Unknown]
  - Toxicity to various agents [Unknown]
